FAERS Safety Report 17525478 (Version 1)
Quarter: 2020Q1

REPORT INFORMATION
  Report Type: Spontaneous
  Country: US (occurrence: US)
  Receive Date: 20200303
  Receipt Date: 20200303
  Transmission Date: 20200409
  Serious: No
  Sender: FDA-Public Use
  Company Number: None

PATIENT
  Age: 45 Year

DRUGS (1)
  1. ABACAVIR 300MG [Suspect]
     Active Substance: ABACAVIR
     Indication: HIV INFECTION
     Route: 048
     Dates: start: 20200228, end: 20200302

REACTIONS (1)
  - Pruritus [None]

NARRATIVE: CASE EVENT DATE: 20200228
